FAERS Safety Report 6133007-7 (Version None)
Quarter: 2009Q1

REPORT INFORMATION
  Report Type: 
  Country: None (occurrence: None)
  Receive Date: 20090326
  Receipt Date: 20090316
  Transmission Date: 20090719
  Serious: Yes (Hospitalization, Other)
  Sender: FDA-Public Use
  Company Number: US-PFIZER INC-2009161493

PATIENT
  Age: 58 Year

DRUGS (1)
  1. SUTENT [Suspect]
     Dosage: 50 MG, UNK
     Route: 048
     Dates: start: 20080601

REACTIONS (6)
  - CONVULSION [None]
  - HYPOKALAEMIA [None]
  - HYPOMAGNESAEMIA [None]
  - METABOLIC ENCEPHALOPATHY [None]
  - PERIORBITAL OEDEMA [None]
  - TRANSIENT ISCHAEMIC ATTACK [None]
